FAERS Safety Report 7476414-2 (Version None)
Quarter: 2011Q2

REPORT INFORMATION
  Report Type: 
  Country: None (occurrence: None)
  Receive Date: 20110512
  Receipt Date: 20110422
  Transmission Date: 20111010
  Serious: No
  Sender: FDA-Public Use
  Company Number: US-B.I. PHARMACEUTICALS,INC./RIDGEFIELD-2011-BP-06937BP

PATIENT
  Sex: Male

DRUGS (13)
  1. VYTORIN [Concomitant]
  2. ZOLPIDEM TARTRATE [Concomitant]
  3. LYRICA [Concomitant]
     Dosage: 150 MG
  4. PRADAXA [Suspect]
     Indication: ANTICOAGULANT THERAPY
     Dosage: 300 MG
     Route: 048
     Dates: start: 20101101
  5. CORTIS [Concomitant]
  6. NEURONTIN [Suspect]
     Route: 048
     Dates: start: 20101101
  7. LEVOTHYROXINE SODIUM [Concomitant]
  8. DIGOXIN [Concomitant]
  9. NIASPAN [Concomitant]
  10. ULTRAM [Concomitant]
  11. LASIX [Concomitant]
  12. K-CHLOR [Concomitant]
  13. NASONEX [Concomitant]

REACTIONS (1)
  - WEIGHT INCREASED [None]
